FAERS Safety Report 13642587 (Version 3)
Quarter: 2019Q2

REPORT INFORMATION
  Report Type: Spontaneous
  Country: BE (occurrence: BE)
  Receive Date: 20170612
  Receipt Date: 20190429
  Transmission Date: 20190711
  Serious: Yes (Hospitalization, Other)
  Sender: FDA-Public Use
  Company Number: BE-AUROBINDO-AUR-APL-2017-35226

PATIENT

DRUGS (3)
  1. CEFTRIAXONE. [Suspect]
     Active Substance: CEFTRIAXONE
     Indication: PRODUCT USED FOR UNKNOWN INDICATION
     Dosage: UNK
     Route: 065
  2. ADALIMUMAB [Suspect]
     Active Substance: ADALIMUMAB
     Indication: PSORIASIS
     Dosage: 40 MG, EVERY TWO WEEKS FOR THE LAST 12 MONTHS
     Route: 065
  3. PANTOPRAZOLE 40MG [Suspect]
     Active Substance: PANTOPRAZOLE SODIUM
     Indication: PRODUCT USED FOR UNKNOWN INDICATION
     Dosage: 40 MG, DAILY
     Route: 065

REACTIONS (10)
  - Tuberculosis [Recovered/Resolved]
  - Blood creatinine increased [Recovering/Resolving]
  - Sepsis [Recovering/Resolving]
  - Acute kidney injury [Recovering/Resolving]
  - Proteinuria [Recovered/Resolved]
  - Escherichia infection [Recovering/Resolving]
  - Pyelonephritis acute [Recovering/Resolving]
  - Tubulointerstitial nephritis [Recovered/Resolved]
  - Urinary tract infection [Recovering/Resolving]
  - Urinary tract obstruction [Recovering/Resolving]
